FAERS Safety Report 22130687 (Version 1)
Quarter: 2023Q1

REPORT INFORMATION
  Report Type: Spontaneous
  Country: RU (occurrence: None)
  Receive Date: 20230323
  Receipt Date: 20230323
  Transmission Date: 20230418
  Serious: Yes (Other)
  Sender: FDA-Public Use
  Company Number: RU-ROCHE-3314110

PATIENT
  Age: 35 Year
  Sex: Female

DRUGS (8)
  1. TRASTUZUMAB [Suspect]
     Active Substance: TRASTUZUMAB
     Indication: Breast cancer
     Dosage: ADJUVANT1 DOSE OF TRASTUZUMAB
     Route: 041
  2. TRASTUZUMAB [Suspect]
     Active Substance: TRASTUZUMAB
     Dosage: SIX CYCLES OF CT WERE ADMINISTERED
     Route: 041
     Dates: start: 20190429
  3. PERTUZUMAB [Suspect]
     Active Substance: PERTUZUMAB
     Indication: Breast cancer
     Route: 041
     Dates: start: 20190426
  4. DOCETAXEL [Suspect]
     Active Substance: DOCETAXEL
     Indication: Breast cancer
     Dosage: SIX CYCLES OF CT WERE ADMINISTERED
     Route: 042
     Dates: start: 20190429
  5. FULVESTRANT [Suspect]
     Active Substance: FULVESTRANT
     Indication: Breast cancer
     Dosage: 500 MG ON DAYS 1 AND 15 IN THE FIRST MONTH
     Route: 030
  6. DOXORUBICIN [Concomitant]
     Active Substance: DOXORUBICIN
     Dosage: ON DAY 1
     Route: 042
  7. CYCLOPHOSPHAMIDE [Concomitant]
     Active Substance: CYCLOPHOSPHAMIDE
     Dosage: DAY 1
     Route: 042
  8. PACLITAXEL [Concomitant]
     Active Substance: PACLITAXEL
     Route: 042

REACTIONS (7)
  - Metastases to lung [Unknown]
  - Metastases to lymph nodes [Unknown]
  - Polyneuropathy [Unknown]
  - Leukopenia [Unknown]
  - Neutropenia [Unknown]
  - Stomatitis [Unknown]
  - Diarrhoea [Unknown]
